FAERS Safety Report 21843049 (Version 7)
Quarter: 2024Q1

REPORT INFORMATION
  Report Type: Spontaneous
  Country: US (occurrence: US)
  Receive Date: 20230110
  Receipt Date: 20240301
  Transmission Date: 20240409
  Serious: Yes (Other)
  Sender: FDA-Public Use
  Company Number: US-PFIZER INC-PV202300004519

PATIENT
  Age: 67 Year
  Sex: Male

DRUGS (2)
  1. LORBRENA [Suspect]
     Active Substance: LORLATINIB
     Indication: Lung neoplasm malignant
     Dosage: 75 MG, DAILY(TAKE 3 TABLETS PO (ORAL) DAILY)
     Route: 048
  2. LORBRENA [Suspect]
     Active Substance: LORLATINIB
     Dosage: TAKE 3 TABLETS (75 MG TOTAL) BY MOUTH ONCE A DAY
     Route: 048

REACTIONS (1)
  - Deafness [Unknown]
